FAERS Safety Report 9450009 (Version 1)
Quarter: 2013Q3

REPORT INFORMATION
  Report Type: Spontaneous
  Country: IT (occurrence: IT)
  Receive Date: 20130809
  Receipt Date: 20130809
  Transmission Date: 20140515
  Serious: Yes (Hospitalization)
  Sender: FDA-Public Use
  Company Number: IT-PFIZER INC-2013231187

PATIENT
  Age: 76 Year
  Sex: Male

DRUGS (11)
  1. RAMIPRIL [Suspect]
     Indication: HYPERTENSION
     Dosage: UNK, DAILY
     Route: 048
     Dates: start: 20130601
  2. LASIX [Suspect]
     Indication: HYPERTENSION
     Dosage: UNK, DAILY
     Route: 048
     Dates: start: 20130101, end: 20130710
  3. SOTALEX [Suspect]
     Indication: HYPERTENSION
     Dosage: UNK, DAILY
     Route: 048
     Dates: start: 20130101
  4. METFORMIN [Concomitant]
     Dosage: UNK
  5. CARDIOASPIRIN [Concomitant]
     Dosage: UNK
  6. NORVASC [Concomitant]
     Dosage: UNK
  7. SIVASTIN [Concomitant]
     Dosage: UNK
  8. CATAPRES-TTS [Concomitant]
     Dosage: UNK
  9. LANTUS [Concomitant]
     Dosage: UNK
  10. TRITTICO [Concomitant]
     Dosage: UNK
  11. LANSOX [Concomitant]
     Dosage: UNK

REACTIONS (1)
  - Sinus bradycardia [Unknown]
